FAERS Safety Report 19211557 (Version 1)
Quarter: 2021Q2

REPORT INFORMATION
  Report Type: Spontaneous
  Country: US (occurrence: US)
  Receive Date: 20210503
  Receipt Date: 20210503
  Transmission Date: 20210717
  Serious: Yes (Life-Threatening, Hospitalization, Other)
  Sender: FDA-Public Use
  Company Number: None

PATIENT
  Age: 34 Year
  Sex: Male
  Weight: 98.4 kg

DRUGS (1)
  1. BAMLANIVIMAB/ETESEVIMAB [Suspect]
     Active Substance: BAMLANIVIMAB\ETESEVIMAB
     Indication: COVID-19
     Route: 041
     Dates: start: 20210430, end: 20210430

REACTIONS (5)
  - Flushing [None]
  - Infusion related reaction [None]
  - Head discomfort [None]
  - Blood pressure increased [None]
  - Infusion site rash [None]

NARRATIVE: CASE EVENT DATE: 20210430
